FAERS Safety Report 13471209 (Version 1)
Quarter: 2017Q2

REPORT INFORMATION
  Report Type: Spontaneous
  Country: US (occurrence: US)
  Receive Date: 20170421
  Receipt Date: 20170421
  Transmission Date: 20170830
  Serious: No
  Sender: FDA-Public Use
  Company Number: None

PATIENT
  Age: 70 Year
  Sex: Female
  Weight: 109.8 kg

DRUGS (1)
  1. VANCOMYCIN [Suspect]
     Active Substance: VANCOMYCIN
     Indication: ARTHRODESIS
     Route: 040
     Dates: start: 20170225, end: 20170331

REACTIONS (3)
  - Nausea [None]
  - Tachycardia [None]
  - Abdominal pain [None]

NARRATIVE: CASE EVENT DATE: 20170330
